FAERS Safety Report 6504467-4 (Version None)
Quarter: 2009Q4

REPORT INFORMATION
  Report Type: 
  Country: None (occurrence: None)
  Receive Date: 20091215
  Receipt Date: 20091201
  Transmission Date: 20100525
  Serious: Yes (Death, Hospitalization)
  Sender: FDA-Public Use
  Company Number: 118

PATIENT
  Age: 70 Year
  Sex: Male
  Weight: 68.0396 kg

DRUGS (9)
  1. FAZACLO ODT [Suspect]
     Indication: SCHIZOPHRENIA
     Dosage: 600 MG PO DAILY
     Route: 048
     Dates: start: 20041110, end: 20070322
  2. DILANTIN [Concomitant]
  3. ABILIFY [Concomitant]
  4. PREVACID [Concomitant]
  5. POTASSIUM [Concomitant]
  6. OSCAL [Concomitant]
  7. MAALOX [Concomitant]
  8. MULTI-VITAMIN [Concomitant]
  9. SENNA [Concomitant]

REACTIONS (2)
  - CONVULSION [None]
  - MYOCARDIAL INFARCTION [None]
